FAERS Safety Report 10824509 (Version 1)
Quarter: 2015Q1

REPORT INFORMATION
  Report Type: Report from Study
  Country: US (occurrence: US)
  Receive Date: 20150219
  Receipt Date: 20150219
  Transmission Date: 20150721
  Serious: No
  Sender: FDA-Public Use
  Company Number: US-ABBVIE-14K-163-1314903-00

PATIENT
  Age: 33 Year
  Sex: Female

DRUGS (2)
  1. HUMIRA [Suspect]
     Active Substance: ADALIMUMAB
     Indication: PSORIATIC ARTHROPATHY
     Route: 065
     Dates: start: 201408, end: 201410
  2. HUMIRA [Suspect]
     Active Substance: ADALIMUMAB
     Indication: ANKYLOSING SPONDYLITIS

REACTIONS (21)
  - Malaise [Recovering/Resolving]
  - Sinus disorder [Recovering/Resolving]
  - Eye discharge [Recovering/Resolving]
  - Dysuria [Recovering/Resolving]
  - Paranasal sinus discomfort [Recovering/Resolving]
  - Dyspnoea [Recovering/Resolving]
  - Headache [Recovering/Resolving]
  - Fall [Unknown]
  - Rhinorrhoea [Recovering/Resolving]
  - Blood urine present [Recovering/Resolving]
  - Urinary tract infection [Recovering/Resolving]
  - Sputum discoloured [Recovering/Resolving]
  - Local swelling [Unknown]
  - Weight bearing difficulty [Unknown]
  - Chest discomfort [Recovering/Resolving]
  - Psoriatic arthropathy [Unknown]
  - Ear pain [Recovering/Resolving]
  - Facial pain [Recovering/Resolving]
  - Productive cough [Recovering/Resolving]
  - Chest pain [Recovering/Resolving]
  - Ankylosing spondylitis [Unknown]

NARRATIVE: CASE EVENT DATE: 201411
